FAERS Safety Report 24253414 (Version 1)
Quarter: 2024Q3

REPORT INFORMATION
  Report Type: Spontaneous
  Country: ZA (occurrence: None)
  Receive Date: 20240827
  Receipt Date: 20240827
  Transmission Date: 20241016
  Serious: Yes (Death)
  Sender: ASTRAZENECA
  Company Number: 2024A192881

PATIENT
  Age: 67 Year
  Sex: Male

DRUGS (6)
  1. BUDESONIDE\FORMOTEROL [Suspect]
     Active Substance: BUDESONIDE\FORMOTEROL
     Indication: Asthma
     Dosage: 4.5 MG UNKNOWN4.5MG UNKNOWN
     Route: 055
  2. DORMONOCT 2 MG [Concomitant]
     Indication: Somnolence
     Route: 048
  3. TRUSTAN 40 MG [Concomitant]
     Indication: Ulcer
     Route: 048
  4. MEBEVERINE [Concomitant]
     Active Substance: MEBEVERINE
     Indication: Abdominal pain upper
     Route: 048
  5. CO-COPALIA 10/160/12. MG [Concomitant]
     Indication: Hypertension
     Route: 048
  6. ACURATE [Concomitant]
     Route: 048

REACTIONS (1)
  - Death [Fatal]

NARRATIVE: CASE EVENT DATE: 20240701
